FAERS Safety Report 21117916 (Version 1)
Quarter: 2022Q3

REPORT INFORMATION
  Report Type: Spontaneous
  Country: US (occurrence: None)
  Receive Date: 20220722
  Receipt Date: 20220722
  Transmission Date: 20221027
  Serious: No
  Sender: FDA-Public Use
  Company Number: 2022A246976

PATIENT
  Age: 602 Month
  Sex: Female

DRUGS (1)
  1. SYMLIN [Suspect]
     Active Substance: PRAMLINTIDE ACETATE
     Indication: Type 1 diabetes mellitus
     Route: 058

REACTIONS (4)
  - Blood glucose increased [Recovered/Resolved]
  - Device use issue [Recovered/Resolved]
  - Incorrect dose administered by device [Recovered/Resolved]
  - Device loosening [Unknown]

NARRATIVE: CASE EVENT DATE: 20220601
